FAERS Safety Report 7510684-7 (Version None)
Quarter: 2011Q2

REPORT INFORMATION
  Report Type: 
  Country: None (occurrence: None)
  Receive Date: 20110530
  Receipt Date: 20110519
  Transmission Date: 20111010
  Serious: Yes (Other)
  Sender: FDA-Public Use
  Company Number: US-BRISTOL-MYERS SQUIBB COMPANY-15758915

PATIENT
  Age: 88 Year
  Sex: Female
  Weight: 70 kg

DRUGS (5)
  1. SYNTHROID [Concomitant]
  2. LANOXIN [Concomitant]
  3. VITAMIN D [Concomitant]
  4. COUMADIN [Suspect]
  5. DIOVAN [Concomitant]

REACTIONS (2)
  - VISUAL ACUITY REDUCED [None]
  - OCULAR HYPERAEMIA [None]
